FAERS Safety Report 5491024-4 (Version None)
Quarter: 2007Q4

REPORT INFORMATION
  Report Type: 
  Country: None (occurrence: None)
  Receive Date: 20071019
  Receipt Date: 20061208
  Transmission Date: 20080405
  Serious: No
  Sender: FDA-Public Use
  Company Number: US-BRISTOL-MYERS SQUIBB COMPANY-13606215

PATIENT
  Age: 5 Day
  Sex: Female
  Weight: 1 kg

DRUGS (2)
  1. CAFCIT [Suspect]
     Indication: APNOEA
     Route: 030
  2. VITAMIN A [Concomitant]

REACTIONS (1)
  - DRUG ADMINISTRATION ERROR [None]
